FAERS Safety Report 25484853 (Version 1)
Quarter: 2025Q2

REPORT INFORMATION
  Report Type: Spontaneous
  Country: AU (occurrence: AU)
  Receive Date: 20250626
  Receipt Date: 20250626
  Transmission Date: 20250716
  Serious: Yes (Other)
  Sender: DR REDDYS
  Company Number: AU-AUS-AUS/2025/06/009035

PATIENT
  Age: 57 Year
  Sex: Female

DRUGS (1)
  1. FINGOLIMOD [Suspect]
     Active Substance: FINGOLIMOD
     Indication: Product used for unknown indication

REACTIONS (2)
  - Cryptococcosis [Unknown]
  - Immune reconstitution inflammatory syndrome [Unknown]
